FAERS Safety Report 5497557-9 (Version None)
Quarter: 2007Q4

REPORT INFORMATION
  Report Type: 
  Country: None (occurrence: None)
  Receive Date: 20071025
  Receipt Date: 20061206
  Transmission Date: 20080405
  Serious: No
  Sender: FDA-Public Use
  Company Number: A0630845A

PATIENT
  Sex: Female

DRUGS (2)
  1. ADVAIR DISKUS 100/50 [Suspect]
     Dates: start: 20061201
  2. METHYLPREDNISOLONE [Suspect]
     Dates: start: 20061201

REACTIONS (3)
  - HYPERVIGILANCE [None]
  - POOR QUALITY SLEEP [None]
  - THERAPEUTIC RESPONSE UNEXPECTED [None]
